FAERS Safety Report 11221887 (Version 2)
Quarter: 2015Q2

REPORT INFORMATION
  Report Type: Spontaneous
  Country: SE (occurrence: SE)
  Receive Date: 20150626
  Receipt Date: 20150630
  Transmission Date: 20150821
  Serious: Yes (Life-Threatening, Other)
  Sender: FDA-Public Use
  Company Number: SE-GILEAD-2015-0160292

PATIENT
  Age: 61 Year
  Sex: Male

DRUGS (7)
  1. SOVALDI [Suspect]
     Active Substance: SOFOSBUVIR
     Indication: HEPATITIS C
     Dosage: 400 MG, QD
     Route: 048
     Dates: start: 20140925, end: 20141217
  2. DACLATASVIR DIHYDROCHLORIDE [Suspect]
     Active Substance: DACLATASVIR DIHYDROCHLORIDE
     Indication: HEPATITIS C
     Dosage: 60 MG, QD
     Route: 048
     Dates: start: 20140925, end: 20141217
  3. HUMALOG MIX50 [Concomitant]
     Route: 065
  4. INSULIN [Concomitant]
     Active Substance: INSULIN NOS
  5. LACTULOSE. [Concomitant]
     Active Substance: LACTULOSE
     Route: 065
  6. ORALOVITE [Concomitant]
     Route: 065
  7. IPREN [Concomitant]
     Active Substance: IBUPROFEN
     Route: 065

REACTIONS (1)
  - Hepatic neoplasm [Not Recovered/Not Resolved]

NARRATIVE: CASE EVENT DATE: 20150429
